FAERS Safety Report 5827802-9 (Version None)
Quarter: 2008Q3

REPORT INFORMATION
  Report Type: 
  Country: None (occurrence: None)
  Receive Date: 20080730
  Receipt Date: 20080715
  Transmission Date: 20090109
  Serious: Yes (Death, Life-Threatening)
  Sender: FDA-Public Use
  Company Number: CN-MERCK-0807CHN00019

PATIENT
  Age: 66 Year
  Sex: Male

DRUGS (52)
  1. IMIPENEM AND CILASTATIN SODIUM [Suspect]
     Indication: PNEUMONIA
     Route: 042
     Dates: start: 20080607, end: 20080630
  2. CILASTATIN SODIUM AND IMIPENEM [Suspect]
     Indication: PNEUMONIA
     Route: 042
     Dates: start: 20080709, end: 20080710
  3. [THERAPY UNSPECIFIED] [Concomitant]
     Indication: PNEUMONIA
     Route: 065
     Dates: start: 20080606, end: 20080629
  4. [THERAPY UNSPECIFIED] [Concomitant]
     Route: 065
     Dates: start: 20080629, end: 20080710
  5. PIPERACILLIN SODIUM AND TAZOBACTAM SODIUM [Concomitant]
     Indication: PNEUMONIA
     Route: 065
     Dates: start: 20080624, end: 20080627
  6. FLUCONAZOLE [Concomitant]
     Indication: PNEUMONIA
     Route: 065
     Dates: start: 20080625, end: 20080627
  7. GRANULOCYTE COLONY STIMULATING FACTOR (UNSPECIFIED) [Concomitant]
     Indication: LEUKAEMIA
     Route: 065
     Dates: start: 20080625, end: 20080626
  8. GRANULOCYTE COLONY STIMULATING FACTOR (UNSPECIFIED) [Concomitant]
     Route: 065
     Dates: start: 20080627, end: 20080710
  9. SULFAMETHOXAZOLE [Concomitant]
     Indication: PNEUMONIA
     Route: 065
     Dates: start: 20080625, end: 20080630
  10. LORATADINE [Concomitant]
     Indication: RASH
     Route: 065
     Dates: start: 20080629, end: 20080706
  11. AMPHOTERICIN B [Concomitant]
     Indication: SYSTEMIC CANDIDA
     Route: 065
     Dates: start: 20080630, end: 20080630
  12. AMPHOTERICIN B [Concomitant]
     Route: 065
     Dates: start: 20080701, end: 20080701
  13. AMPHOTERICIN B [Concomitant]
     Route: 065
     Dates: start: 20080702, end: 20080702
  14. AMPHOTERICIN B [Concomitant]
     Route: 065
     Dates: start: 20080703, end: 20080708
  15. AMPHOTERICIN B [Concomitant]
     Route: 065
     Dates: start: 20080709, end: 20080710
  16. AMPHOTERICIN B [Concomitant]
     Indication: PNEUMONIA
     Route: 065
     Dates: start: 20080630, end: 20080630
  17. AMPHOTERICIN B [Concomitant]
     Route: 065
     Dates: start: 20080701, end: 20080701
  18. AMPHOTERICIN B [Concomitant]
     Route: 065
     Dates: start: 20080702, end: 20080702
  19. AMPHOTERICIN B [Concomitant]
     Route: 065
     Dates: start: 20080703, end: 20080708
  20. AMPHOTERICIN B [Concomitant]
     Route: 065
     Dates: start: 20080709, end: 20080710
  21. [THERAPY UNSPECIFIED] [Concomitant]
     Indication: SYSTEMIC CANDIDA
     Route: 065
     Dates: start: 20080630, end: 20080717
  22. [THERAPY UNSPECIFIED] [Concomitant]
     Route: 065
     Dates: start: 20080630, end: 20080717
  23. [THERAPY UNSPECIFIED] [Concomitant]
     Route: 065
     Dates: start: 20080701, end: 20080710
  24. ITRACONAZOLE [Concomitant]
     Indication: PNEUMONIA
     Route: 065
     Dates: start: 20080701, end: 20080710
  25. ITRACONAZOLE [Concomitant]
     Indication: SYSTEMIC CANDIDA
     Route: 065
     Dates: start: 20080701, end: 20080710
  26. TEICOPLANIN [Concomitant]
     Indication: PNEUMONIA
     Route: 065
     Dates: start: 20080702, end: 20080702
  27. TEICOPLANIN [Concomitant]
     Route: 065
     Dates: start: 20080703, end: 20080710
  28. GLYCYRRHIZIN [Concomitant]
     Indication: HEPATIC FUNCTION ABNORMAL
     Route: 065
     Dates: start: 20080703, end: 20080710
  29. ALBUMIN HUMAN [Concomitant]
     Indication: LIFE SUPPORT
     Route: 065
     Dates: start: 20080703, end: 20080709
  30. ETHAMSYLATE [Concomitant]
     Indication: HAEMOPTYSIS
     Route: 065
     Dates: start: 20080705, end: 20080710
  31. AMINOMETHYLBENZOIC ACID [Concomitant]
     Indication: HAEMOPTYSIS
     Route: 065
     Dates: start: 20080705, end: 20080710
  32. HEMOCOAGULASE [Concomitant]
     Indication: HAEMOPTYSIS
     Route: 065
     Dates: start: 20080705, end: 20080710
  33. CASPOFUNGIN ACETATE [Concomitant]
     Indication: SYSTEMIC CANDIDA
     Route: 065
     Dates: start: 20080706, end: 20080710
  34. CASPOFUNGIN ACETATE [Concomitant]
     Indication: PNEUMONIA
     Route: 065
     Dates: start: 20080706, end: 20080710
  35. METHYLPREDNISOLONE [Concomitant]
     Indication: PNEUMONIA
     Route: 065
     Dates: start: 20080707, end: 20080707
  36. METHYLPREDNISOLONE [Concomitant]
     Route: 065
     Dates: start: 20080708, end: 20080708
  37. METHYLPREDNISOLONE [Concomitant]
     Route: 065
     Dates: start: 20080706, end: 20080706
  38. PIPERACILLIN SODIUM AND TAZOBACTAM SODIUM [Concomitant]
     Route: 065
     Dates: start: 20080707, end: 20080708
  39. ADEMETIONINE [Concomitant]
     Indication: HEPATIC FUNCTION ABNORMAL
     Route: 065
     Dates: start: 20080708, end: 20080710
  40. GLUTATHIONE [Concomitant]
     Indication: HEPATIC FUNCTION ABNORMAL
     Route: 065
     Dates: start: 20080708, end: 20080710
  41. PLATELET CONCENTRATE [Concomitant]
     Indication: LEUKAEMIA
     Route: 065
     Dates: start: 20080628, end: 20080628
  42. PLATELET CONCENTRATE [Concomitant]
     Route: 065
     Dates: start: 20080630, end: 20080630
  43. PLATELET CONCENTRATE [Concomitant]
     Route: 065
     Dates: start: 20080705, end: 20080705
  44. PLATELET CONCENTRATE [Concomitant]
     Route: 065
     Dates: start: 20080708, end: 20080708
  45. BLOOD CELLS, RED [Concomitant]
     Indication: LEUKAEMIA
     Route: 065
     Dates: start: 20080628, end: 20080628
  46. BLOOD CELLS, RED [Concomitant]
     Route: 065
     Dates: start: 20080705, end: 20080705
  47. BLOOD CELLS, RED [Concomitant]
     Route: 065
     Dates: start: 20080708, end: 20080708
  48. BLOOD CELLS, RED [Concomitant]
     Route: 065
     Dates: start: 20080709, end: 20080709
  49. AMINOPHYLLINE [Concomitant]
     Indication: PNEUMONIA
     Route: 065
     Dates: start: 20080629, end: 20080629
  50. CALCIUM GLUCONATE [Concomitant]
     Indication: RASH
     Route: 065
     Dates: start: 20080629, end: 20080629
  51. CASPOFUNGIN ACETATE [Concomitant]
     Indication: CANDIDIASIS
     Route: 042
     Dates: start: 20080627, end: 20080627
  52. CASPOFUNGIN ACETATE [Concomitant]
     Route: 042
     Dates: start: 20080628, end: 20080630

REACTIONS (7)
  - ACUTE MONOCYTIC LEUKAEMIA [None]
  - AGRANULOCYTOSIS [None]
  - FUNGUS CULTURE POSITIVE [None]
  - HEPATIC ENZYME INCREASED [None]
  - JAUNDICE [None]
  - LUNG INFECTION [None]
  - RESPIRATORY FAILURE [None]
